FAERS Safety Report 7929848-3 (Version None)
Quarter: 2011Q4

REPORT INFORMATION
  Report Type: 
  Country: None (occurrence: None)
  Receive Date: 20111121
  Receipt Date: 20111118
  Transmission Date: 20120403
  Serious: Yes (Other)
  Sender: FDA-Public Use
  Company Number: US-PFIZER INC-2011283336

PATIENT
  Sex: Female
  Weight: 74.83 kg

DRUGS (3)
  1. LYRICA [Concomitant]
     Indication: FIBROMYALGIA
     Dosage: 100 MG, 2X/DAY
  2. CELEBREX [Suspect]
     Indication: RHEUMATOID ARTHRITIS
     Dosage: 200 MG, 2X/DAY
  3. EFFEXOR XR [Concomitant]
     Indication: DEPRESSION
     Dosage: 150 MG, DAILY

REACTIONS (1)
  - GASTRIC HAEMORRHAGE [None]
